FAERS Safety Report 16468588 (Version 1)
Quarter: 2019Q3

REPORT INFORMATION
  Report Type: Spontaneous
  Country: US (occurrence: US)
  Receive Date: 20190621
  Receipt Date: 20190621
  Transmission Date: 20191004
  Serious: No
  Sender: FDA-Public Use
  Company Number: None

PATIENT
  Age: 64 Year
  Sex: Male
  Weight: 76.5 kg

DRUGS (11)
  1. SOMADERM TRANSDERMAL GEL [Suspect]
     Active Substance: HOMEOPATHICS
     Indication: PRODUCT USED FOR UNKNOWN INDICATION
     Route: 061
     Dates: start: 20180328, end: 20190101
  2. DHEA [Concomitant]
     Active Substance: PRASTERONE
  3. ZINC. [Concomitant]
     Active Substance: ZINC
  4. GLIMEPIRIDE. [Concomitant]
     Active Substance: GLIMEPIRIDE
  5. DHA /1000 [Concomitant]
  6. METFORMIN [Concomitant]
     Active Substance: METFORMIN HYDROCHLORIDE
  7. EPA/975 [Concomitant]
  8. PROOMEGA-D EXTRA [Concomitant]
  9. VITAMIN D3 [Concomitant]
     Active Substance: CHOLECALCIFEROL
  10. IODORAL [Concomitant]
     Active Substance: IODINE\POTASSIUM IODIDE
  11. VIT D [Concomitant]
     Active Substance: VITAMIN D NOS

REACTIONS (3)
  - Deafness [None]
  - Product formulation issue [None]
  - Therapeutic product ineffective [None]

NARRATIVE: CASE EVENT DATE: 20190621
